FAERS Safety Report 8072469-5 (Version None)
Quarter: 2012Q1

REPORT INFORMATION
  Report Type: 
  Country: None (occurrence: None)
  Receive Date: 20120126
  Receipt Date: 20120119
  Transmission Date: 20120608
  Serious: Yes (Other)
  Sender: FDA-Public Use
  Company Number: CA-PFIZER INC-2012016397

PATIENT

DRUGS (2)
  1. CAMPTOSAR [Suspect]
     Dosage: UNK
  2. FLUOROURACIL [Suspect]
     Dosage: UNK

REACTIONS (1)
  - PULMONARY TOXICITY [None]
